FAERS Safety Report 4578055-3 (Version None)
Quarter: 2005Q1

REPORT INFORMATION
  Report Type: 
  Country: None (occurrence: None)
  Receive Date: 20050209
  Receipt Date: 20050124
  Transmission Date: 20050727
  Serious: Yes (Hospitalization, Other)
  Sender: FDA-Public Use
  Company Number: JP_040703951

PATIENT
  Age: 70 Year
  Sex: Male
  Weight: 52 kg

DRUGS (6)
  1. PERMAX [Suspect]
     Indication: PARKINSON'S DISEASE
     Dosage: 1000 UG DAY
     Dates: start: 19950315, end: 20040720
  2. MENESIT [Concomitant]
  3. WARFARIN SODIUM [Concomitant]
  4. SELEGILINE HYDROCHLORIDE [Concomitant]
  5. LASIX [Concomitant]
  6. CARVEDILOL [Concomitant]

REACTIONS (32)
  - AORTIC ATHEROSCLEROSIS [None]
  - ATRIAL FIBRILLATION [None]
  - BRADYKINESIA [None]
  - CARDIAC FAILURE CHRONIC [None]
  - CARDIOMEGALY [None]
  - CAROTID ARTERY DISSECTION [None]
  - CEREBRAL ARTERY OCCLUSION [None]
  - CEREBRAL ATROPHY [None]
  - COAGULATION TEST ABNORMAL [None]
  - CONDITION AGGRAVATED [None]
  - DELIRIUM [None]
  - DEPRESSED LEVEL OF CONSCIOUSNESS [None]
  - DIZZINESS [None]
  - DRUG EFFECT DECREASED [None]
  - DYSLALIA [None]
  - EMBOLIC CEREBRAL INFARCTION [None]
  - FOREIGN BODY ASPIRATION [None]
  - GENERAL PHYSICAL HEALTH DETERIORATION [None]
  - HALLUCINATION [None]
  - HEMIPARESIS [None]
  - INSOMNIA [None]
  - LOSS OF CONSCIOUSNESS [None]
  - MEDICAL DEVICE COMPLICATION [None]
  - NUCLEAR MAGNETIC RESONANCE IMAGING BRAIN ABNORMAL [None]
  - PARKINSON'S DISEASE [None]
  - PNEUMONIA [None]
  - POLLAKIURIA [None]
  - REFUSAL OF EXAMINATION [None]
  - RESTLESSNESS [None]
  - SPEECH DISORDER [None]
  - UNRESPONSIVE TO VERBAL STIMULI [None]
  - URINARY RETENTION [None]
